FAERS Safety Report 12140660 (Version 1)
Quarter: 2016Q1

REPORT INFORMATION
  Report Type: Spontaneous
  Country: US (occurrence: None)
  Receive Date: 20160302
  Receipt Date: 20160302
  Transmission Date: 20160526
  Serious: Yes (Hospitalization)
  Sender: FDA-Public Use
  Company Number: None

PATIENT
  Age: 66 Year
  Sex: Male
  Weight: 121.7 kg

DRUGS (1)
  1. CISPLATIN. [Suspect]
     Active Substance: CISPLATIN
     Dates: end: 20151103

REACTIONS (6)
  - Oropharyngeal pain [None]
  - Pulmonary embolism [None]
  - Odynophagia [None]
  - Dysphagia [None]
  - Hypotension [None]
  - Encephalopathy [None]

NARRATIVE: CASE EVENT DATE: 20151118
